FAERS Safety Report 17461636 (Version 1)
Quarter: 2020Q1

REPORT INFORMATION
  Report Type: Spontaneous
  Country: US (occurrence: US)
  Receive Date: 20200214
  Receipt Date: 20200214
  Transmission Date: 20200409
  Serious: Yes (Hospitalization)
  Sender: FDA-Public Use
  Company Number: None

PATIENT
  Sex: Female
  Weight: 67.1 kg

DRUGS (4)
  1. RITUXIMAB (MOAB C2B2 ANTI CD20, CHIMERIC) [Suspect]
     Active Substance: RITUXIMAB
     Dates: end: 20191218
  2. VITAMIN B12 [Concomitant]
     Active Substance: CYANOCOBALAMIN
  3. FAMOTIDINE. [Concomitant]
     Active Substance: FAMOTIDINE
  4. LORATADINE. [Concomitant]
     Active Substance: LORATADINE

REACTIONS (7)
  - Dyspnoea [None]
  - Haemoglobin decreased [None]
  - Chest pain [None]
  - Hyperhidrosis [None]
  - Platelet count decreased [None]
  - Coronary artery stenosis [None]
  - Electrocardiogram ST segment elevation [None]

NARRATIVE: CASE EVENT DATE: 20191231
